FAERS Safety Report 8835775 (Version 1)
Quarter: 2012Q4

REPORT INFORMATION
  Report Type: 
  Country: US (occurrence: US)
  Receive Date: 20121011
  Receipt Date: 20121011
  Transmission Date: 20130627
  Serious: No
  Sender: FDA-Public Use
  Company Number: US-ASTRAZENECA-2012SE74768

PATIENT
  Sex: Female

DRUGS (1)
  1. SYMBICORT [Suspect]
     Dosage: 160/4.5 MCG, 2 PUFFS BID
     Route: 055
     Dates: start: 2009

REACTIONS (2)
  - Dyspnoea [Unknown]
  - Chest pain [Unknown]
